FAERS Safety Report 5161978-4 (Version None)
Quarter: 2006Q4

REPORT INFORMATION
  Report Type: 
  Country: None (occurrence: None)
  Receive Date: 20061121
  Receipt Date: 20060530
  Transmission Date: 20070319
  Serious: Yes (Other)
  Sender: FDA-Public Use
  Company Number: A03200603672

PATIENT
  Age: 51 Year
  Sex: Female
  Weight: 72.5755 kg

DRUGS (14)
  1. AMBIEN [Suspect]
     Dosage: 10 MG QD - ORAL
     Route: 048
     Dates: start: 20010101, end: 20050101
  2. AMBIEN [Suspect]
     Dosage: 6.25 MG HS - ORAL
     Route: 048
     Dates: start: 20051101, end: 20051101
  3. AMBIEN [Suspect]
     Dosage: 12.5 MG HS - ORAL
     Route: 048
     Dates: start: 20060101
  4. ORLISTAT [Concomitant]
  5. BENZATROPINE [Concomitant]
  6. LEVOTHYROXINE SODIUM [Concomitant]
  7. LITHIUM CARBONATE [Concomitant]
  8. PROPRANOLOL HYDROCHLORIDE [Concomitant]
  9. NEFAZODONE HCL [Concomitant]
  10. OLANZAPINE [Concomitant]
  11. DIAZEPAM [Concomitant]
  12. TRIAZOLAM [Concomitant]
  13. ALPRAZOLAM [Concomitant]
  14. PHENTERMINE HYDROCHLORIDE [Concomitant]

REACTIONS (26)
  - ALOPECIA [None]
  - AMNESIA [None]
  - ANXIETY [None]
  - CERVICAL VERTEBRAL FRACTURE [None]
  - DEPRESSION [None]
  - DRUG DEPENDENCE [None]
  - FALL [None]
  - HALLUCINATION, AUDITORY [None]
  - HEAD INJURY [None]
  - HYPERPHAGIA [None]
  - HYPOTHYROIDISM [None]
  - INSOMNIA [None]
  - INTERVERTEBRAL DISC DEGENERATION [None]
  - LIGAMENT RUPTURE [None]
  - MANIA [None]
  - MEMORY IMPAIRMENT [None]
  - OBSESSIVE-COMPULSIVE DISORDER [None]
  - ONYCHOPHAGIA [None]
  - PANCREATITIS [None]
  - PANIC ATTACK [None]
  - ROAD TRAFFIC ACCIDENT [None]
  - ROTATOR CUFF SYNDROME [None]
  - SELF-MEDICATION [None]
  - SUICIDAL IDEATION [None]
  - TREMOR [None]
  - WEIGHT INCREASED [None]
